FAERS Safety Report 15897342 (Version 1)
Quarter: 2019Q1

REPORT INFORMATION
  Report Type: Spontaneous
  Country: US (occurrence: US)
  Receive Date: 20190131
  Receipt Date: 20190131
  Transmission Date: 20190417
  Serious: No
  Sender: FDA-Public Use
  Company Number: US-TEIKOKU PHARMA USA-TPU2019-00052

PATIENT
  Sex: Female

DRUGS (4)
  1. LEVOTHYROXINE. [Concomitant]
     Active Substance: LEVOTHYROXINE
     Route: 048
  2. MIDODRINE [Concomitant]
     Active Substance: MIDODRINE
  3. LYRICA [Concomitant]
     Active Substance: PREGABALIN
     Dosage: 1 CAPSULE TWICE A DAY
  4. LIDOCAINE PATCH [Suspect]
     Active Substance: LIDOCAINE
     Indication: PRODUCT USED FOR UNKNOWN INDICATION
     Dosage: ON HER FOOT: UNKNOWN FOOT LOCATION
     Route: 061
     Dates: start: 20181213

REACTIONS (1)
  - Application site rash [Unknown]
